FAERS Safety Report 9533120 (Version 1)
Quarter: 2013Q2

REPORT INFORMATION
  Report Type: Spontaneous
  Country: US (occurrence: None)
  Receive Date: 20130418
  Receipt Date: 20130418
  Transmission Date: 20140414
  Serious: Yes (Other)
  Sender: FDA-Public Use
  Company Number: 2012PROUSA02408

PATIENT
  Age: 81 Year
  Sex: Male
  Weight: 69.8 kg

DRUGS (1)
  1. PROVENGE [Suspect]
     Indication: PROSTATE CANCER METASTATIC
     Dosage: 250 ML. SINGLE, INTRAVENOUS
     Route: 042
     Dates: start: 20121206, end: 20121206

REACTIONS (1)
  - Pneumonia [None]
